FAERS Safety Report 6627689 (Version 2)
Quarter: 2013Q2

REPORT INFORMATION
  Report Type: Spontaneous
  Country: US (occurrence: US)
  Receive Date: 20080429
  Receipt Date: 20130501
  Transmission Date: 20140414
  Serious: No
  Sender: FDA-Public Use
  Company Number: US-ASTRAZENECA-2007UW04195

PATIENT
  Age: 81 Year
  Sex: Female
  Weight: 46.3 kg

DRUGS (14)
  1. NEXIUM [Suspect]
     Indication: GASTROOESOPHAGEAL REFLUX DISEASE
     Route: 048
  2. NEXIUM [Suspect]
     Indication: ULCER
     Route: 048
  3. VERAPAMIL [Concomitant]
  4. SIMVASTATIN [Concomitant]
  5. BENICAR [Concomitant]
  6. ASPIRIN [Concomitant]
  7. CALCIUM [Concomitant]
  8. VITAMIN C [Concomitant]
  9. MULTIVITAMIN [Concomitant]
  10. VITAMIN E [Concomitant]
  11. PREDNISOLONE EYE DROPS [Concomitant]
     Route: 047
  12. TIMOLOL EYE DROPS [Concomitant]
     Route: 047
  13. XYANAX EYE DROPS [Concomitant]
     Route: 047
  14. XANAX [Concomitant]

REACTIONS (13)
  - Oral discomfort [Unknown]
  - Throat irritation [Unknown]
  - Burning sensation [Unknown]
  - Blood pressure increased [Unknown]
  - Dyspepsia [Unknown]
  - Burning sensation [Unknown]
  - Dysphonia [Unknown]
  - Upper-airway cough syndrome [Unknown]
  - Malaise [Unknown]
  - Insomnia [Unknown]
  - Hyponatraemia [Unknown]
  - Nausea [Unknown]
  - Intentional drug misuse [Unknown]
